FAERS Safety Report 5401371-X (Version None)
Quarter: 2007Q3

REPORT INFORMATION
  Report Type: 
  Country: None (occurrence: None)
  Receive Date: 20070731
  Receipt Date: 20070725
  Transmission Date: 20080115
  Serious: Yes (Other)
  Sender: FDA-Public Use
  Company Number: B0477699A

PATIENT
  Age: 73 Year
  Sex: Female
  Weight: 59 kg

DRUGS (13)
  1. ARIXTRA [Suspect]
     Indication: THROMBOSIS PROPHYLAXIS
     Dosage: 2.5MG PER DAY
     Route: 058
     Dates: start: 20070614, end: 20070617
  2. DIOVAN [Concomitant]
     Indication: HYPERTENSION
     Route: 048
  3. SOLU-MEDROL [Concomitant]
     Dosage: 250MG PER DAY
     Route: 042
     Dates: start: 20070613, end: 20070613
  4. UNKNOWN DRUG [Concomitant]
     Indication: INFECTION PROPHYLAXIS
     Dosage: 2G PER DAY
     Route: 042
     Dates: start: 20070613, end: 20070618
  5. PREDONINE [Concomitant]
     Indication: RHEUMATOID ARTHRITIS
     Dosage: 5MG PER DAY
     Route: 048
  6. OMEPRAZOLE [Concomitant]
     Indication: GASTROINTESTINAL ULCER
     Dosage: 10MG PER DAY
     Route: 048
  7. KENTAN [Concomitant]
     Indication: RHEUMATOID ARTHRITIS
     Route: 048
  8. RHEUMATREX [Concomitant]
     Indication: RHEUMATOID ARTHRITIS
     Route: 048
  9. BONALON [Concomitant]
     Indication: OSTEOPOROSIS
     Dosage: 35MG PER DAY
     Route: 048
     Dates: start: 20070315
  10. SELBEX [Concomitant]
     Indication: GASTRITIS
     Route: 048
  11. STOMILASE [Concomitant]
     Indication: GASTRITIS
     Route: 048
  12. MAGLAX [Concomitant]
     Indication: CONSTIPATION
     Route: 048
  13. YODEL S [Concomitant]
     Indication: CONSTIPATION
     Route: 048

REACTIONS (4)
  - CEREBRAL INFARCTION [None]
  - DYSARTHRIA [None]
  - HYPOTENSION [None]
  - TREMOR [None]
